FAERS Safety Report 7206077-2 (Version None)
Quarter: 2010Q4

REPORT INFORMATION
  Report Type: 
  Country: None (occurrence: None)
  Receive Date: 20101229
  Receipt Date: 20101229
  Transmission Date: 20110411
  Serious: Yes (Hospitalization)
  Sender: FDA-Public Use
  Company Number: None

PATIENT
  Sex: Female
  Weight: 70 kg

DRUGS (2)
  1. CARBOPLATIN [Suspect]
     Dosage: 600 MG
     Dates: end: 20101208
  2. TAXOL [Suspect]
     Dosage: 280 MG
     Dates: end: 20101214

REACTIONS (2)
  - ESCHERICHIA INFECTION [None]
  - UROSEPSIS [None]
